FAERS Safety Report 15119275 (Version 2)
Quarter: 2018Q3

REPORT INFORMATION
  Report Type: Spontaneous
  Country: NL (occurrence: NL)
  Receive Date: 20180709
  Receipt Date: 20180712
  Transmission Date: 20181010
  Serious: Yes (Death)
  Sender: FDA-Public Use
  Company Number: NL-TEVA-2018-NL-922514

PATIENT
  Age: 24 Year
  Sex: Male
  Weight: 100 kg

DRUGS (2)
  1. METOPROLOL 50 1D1 AVOND [Suspect]
     Active Substance: METOPROLOL
     Indication: TACHYCARDIA
     Dosage: 50 MILLIGRAM DAILY; 1D1 VOOR HET SLAPEN.
     Route: 065
     Dates: start: 2016
  2. CLOZAPINE AUROBINDO TABLET 100MG TABLET, 100 MG (MILLIGRAM) [Suspect]
     Active Substance: CLOZAPINE
     Indication: PSYCHOTIC DISORDER
     Dosage: 550 MILLIGRAM DAILY; 1DD 550 MG VOOR DE NACHT
     Dates: start: 2016

REACTIONS (1)
  - Death [Fatal]

NARRATIVE: CASE EVENT DATE: 20180525
